FAERS Safety Report 18343504 (Version 1)
Quarter: 2020Q4

REPORT INFORMATION
  Report Type: Report from Study
  Country: CA (occurrence: CA)
  Receive Date: 20201005
  Receipt Date: 20201005
  Transmission Date: 20210113
  Serious: Yes (Hospitalization)
  Sender: FDA-Public Use
  Company Number: CA-ACCORD-203924

PATIENT
  Sex: Female

DRUGS (19)
  1. MYCOPHENOLIC ACID. [Suspect]
     Active Substance: MYCOPHENOLIC ACID
     Indication: PRODUCT USED FOR UNKNOWN INDICATION
     Route: 065
  2. METRONIDAZOLE. [Concomitant]
     Active Substance: METRONIDAZOLE
     Dosage: NOT SPECIFIED
  3. SALBUTAMOL [Concomitant]
     Active Substance: ALBUTEROL
     Dosage: NOT SPECIFIED
  4. FOLINIC ACID [Concomitant]
     Active Substance: LEUCOVORIN
  5. RISEDRONIC ACID [Concomitant]
     Active Substance: RISEDRONIC ACID
  6. PREDNISONE. [Concomitant]
     Active Substance: PREDNISONE
     Dosage: NOT SPECIFIED
  7. PREMARIN [Concomitant]
     Active Substance: ESTROGENS, CONJUGATED
     Dosage: NOT SPECIFIED
  8. CANDESARTAN. [Concomitant]
     Active Substance: CANDESARTAN
  9. TRIAMCINOLONE [Concomitant]
     Active Substance: TRIAMCINOLONE
  10. RITUXIMAB. [Suspect]
     Active Substance: RITUXIMAB
     Indication: MYASTHENIA GRAVIS
     Route: 042
  11. MESTINON [Concomitant]
     Active Substance: PYRIDOSTIGMINE BROMIDE
  12. PEPTO-BISMOL [Concomitant]
     Active Substance: BISMUTH SUBSALICYLATE
  13. PARACETAMOL [Concomitant]
     Active Substance: ACETAMINOPHEN
     Dosage: NOT SPECIFIED
  14. AMIODARONE [Concomitant]
     Active Substance: AMIODARONE
  15. OLOPATADINE/OLOPATADINE HYDROCHLORIDE [Concomitant]
     Active Substance: OLOPATADINE
     Dosage: NOT SPECIFIED
  16. ZINC. [Concomitant]
     Active Substance: ZINC
     Dosage: NOT SPECIFIED
  17. ADVAIR HFA [Concomitant]
     Active Substance: FLUTICASONE PROPIONATE\SALMETEROL XINAFOATE
     Dosage: NOT SPECIFIED
  18. DILTIAZEM. [Concomitant]
     Active Substance: DILTIAZEM
  19. MONTELUKAST [Concomitant]
     Active Substance: MONTELUKAST SODIUM
     Dosage: NOT SPECIFIED

REACTIONS (2)
  - Intentional product use issue [Unknown]
  - Rhinovirus infection [Unknown]
